FAERS Safety Report 5240727-5 (Version None)
Quarter: 2007Q1

REPORT INFORMATION
  Report Type: 
  Country: None (occurrence: None)
  Receive Date: 20061208
  Receipt Date: 20051020
  Transmission Date: 20070707
  Serious: Yes (Other)
  Sender: FDA-Public Use
  Company Number: 2005UW15781

PATIENT
  Age: 67 Year
  Sex: Female
  Weight: 95.707 kg

DRUGS (7)
  1. CRESTOR [Suspect]
     Indication: BLOOD CHOLESTEROL INCREASED
     Dosage: 20 MG QD PO
     Route: 048
  2. METFORMIN HCL [Concomitant]
  3. NO MATCH [Concomitant]
  4. SYNTHROID [Concomitant]
  5. DYAZIDE [Concomitant]
  6. ADVAIR DISKUS 100/50 [Concomitant]
  7. PRILOSEC OTC [Concomitant]

REACTIONS (1)
  - BLOOD CHOLESTEROL INCREASED [None]
